FAERS Safety Report 4870742-2 (Version None)
Quarter: 2005Q4

REPORT INFORMATION
  Report Type: 
  Country: None (occurrence: None)
  Receive Date: 20051229
  Receipt Date: 20051220
  Transmission Date: 20060501
  Serious: Yes (Hospitalization)
  Sender: FDA-Public Use
  Company Number: FR200512003146

PATIENT
  Age: 37 Year
  Sex: Female
  Weight: 53 kg

DRUGS (6)
  1. ZYPREXA [Suspect]
     Indication: BIPOLAR I DISORDER
     Dosage: 10 MG, OTHER, INTRAMUSCULAR
     Route: 030
     Dates: start: 20050629, end: 20050629
  2. ZYPREXA [Suspect]
     Indication: BIPOLAR I DISORDER
     Dosage: 10 MG, 2/D, ORAL
     Route: 048
     Dates: start: 20050706
  3. CLOPIXOL ACUPHASE (ZUCLOPENTHIXOL ACETATE) [Concomitant]
  4. DEPAKOTE [Concomitant]
  5. LORAZEPAM [Concomitant]
  6. SPECIAFOLDINE (FOLIC ACID) [Concomitant]

REACTIONS (3)
  - ABORTION SPONTANEOUS [None]
  - DRUG EXPOSURE DURING PREGNANCY [None]
  - PREGNANCY [None]
